FAERS Safety Report 10257776 (Version 3)
Quarter: 2014Q3

REPORT INFORMATION
  Report Type: Spontaneous
  Country: JP (occurrence: None)
  Receive Date: 20140620
  Receipt Date: 20140725
  Transmission Date: 20150326
  Serious: Yes (Hospitalization)
  Sender: FDA-Public Use
  Company Number: 2014-19724

PATIENT
  Age: 78 Year
  Sex: Male
  Weight: 42 kg

DRUGS (6)
  1. ADONA (CARBAZOCHROME SODIUM SULFONATE) [Concomitant]
  2. MAINTATE (BISOPROLOL FUMARATE) [Concomitant]
  3. EYLEA [Suspect]
     Active Substance: AFLIBERCEPT
     Indication: AGE-RELATED MACULAR DEGENERATION
     Route: 031
     Dates: start: 20140421, end: 20140421
  4. TRANSAMIN (TRANEXAMIC ACID) [Concomitant]
  5. WARFARIN (WARFARIN) [Concomitant]
     Active Substance: WARFARIN
  6. SELARA (EPLERENONE) [Concomitant]
     Active Substance: EPLERENONE

REACTIONS (1)
  - Haemoptysis [None]

NARRATIVE: CASE EVENT DATE: 20140526
